FAERS Safety Report 9010089 (Version 2)
Quarter: 2013Q1

REPORT INFORMATION
  Report Type: Spontaneous
  Country: BE (occurrence: BE)
  Receive Date: 20130110
  Receipt Date: 20130118
  Transmission Date: 20140127
  Serious: Yes (Hospitalization)
  Sender: FDA-Public Use
  Company Number: BE-BRISTOL-MYERS SQUIBB COMPANY-17257494

PATIENT
  Age: 79 Year
  Sex: Male
  Weight: 69.9 kg

DRUGS (7)
  1. ONGLYZA TABS [Suspect]
     Dosage: IN THE MRNG
     Route: 048
     Dates: start: 2012, end: 20121102
  2. NOVONORM [Suspect]
     Route: 048
     Dates: start: 2012
  3. METFORMAX [Suspect]
     Route: 048
     Dates: start: 2006, end: 20121102
  4. BURINEX [Suspect]
     Dosage: BURINEX 5MG IS THE STRENGTH?1DF= 1/2 TAB.
     Route: 048
     Dates: start: 2012, end: 20121102
  5. ASAFLOW [Suspect]
     Dosage: IN THE MRNG
     Route: 048
     Dates: start: 2006
  6. COVERSYL [Suspect]
     Route: 048
     Dates: start: 2006
  7. PLAVIX [Suspect]
     Dosage: IN THE MRNG
     Route: 048

REACTIONS (3)
  - Fall [Recovered/Resolved]
  - Loss of consciousness [Unknown]
  - Pancreatitis [Recovered/Resolved]
